FAERS Safety Report 4789889-4 (Version None)
Quarter: 2005Q4

REPORT INFORMATION
  Report Type: 
  Country: None (occurrence: None)
  Receive Date: 20051006
  Receipt Date: 20050119
  Transmission Date: 20060501
  Serious: Yes (Death, Disabling)
  Sender: FDA-Public Use
  Company Number: US-MERCK-0501USA03243

PATIENT
  Age: 61 Year
  Sex: Male
  Weight: 93 kg

DRUGS (1)
  1. VIOXX [Suspect]
     Indication: ARTHRITIS
     Route: 048
     Dates: start: 20000422, end: 20040727

REACTIONS (11)
  - ACCIDENT [None]
  - ARTERIAL OCCLUSIVE DISEASE [None]
  - BENIGN PROSTATIC HYPERPLASIA [None]
  - CARDIOVASCULAR DISORDER [None]
  - DEATH [None]
  - ILIAC ARTERY THROMBOSIS [None]
  - INTERMITTENT CLAUDICATION [None]
  - ISCHAEMIA [None]
  - PULSE PRESSURE DECREASED [None]
  - SLEEP DISORDER [None]
  - THROMBOSIS [None]
